FAERS Safety Report 6259613-7 (Version None)
Quarter: 2009Q3

REPORT INFORMATION
  Report Type: 
  Country: None (occurrence: None)
  Receive Date: 20090708
  Receipt Date: 20090529
  Transmission Date: 20100115
  Serious: Yes (Other)
  Sender: FDA-Public Use
  Company Number: GB-JNJFOC-20090702017

PATIENT

DRUGS (2)
  1. ITRACONAZOLE [Suspect]
     Indication: SYSTEMIC MYCOSIS
     Route: 065
  2. ITRACONAZOLE [Suspect]
     Route: 042

REACTIONS (2)
  - ASPERGILLOSIS [None]
  - DRUG LEVEL BELOW THERAPEUTIC [None]
